FAERS Safety Report 13737093 (Version 1)
Quarter: 2017Q3

REPORT INFORMATION
  Report Type: Spontaneous
  Country: FR (occurrence: FR)
  Receive Date: 20170710
  Receipt Date: 20170710
  Transmission Date: 20171127
  Serious: Yes (Other)
  Sender: FDA-Public Use
  Company Number: FR-BAYER-2017-128911

PATIENT
  Age: 44 Year
  Sex: Female

DRUGS (1)
  1. MIRENA [Suspect]
     Active Substance: LEVONORGESTREL
     Indication: CONTRACEPTION
     Dosage: 20 MCG/24HR, CONT
     Route: 015
     Dates: start: 201006, end: 20170512

REACTIONS (16)
  - Intraocular pressure increased [Not Recovered/Not Resolved]
  - Vertigo [Recovering/Resolving]
  - Abdominal distension [Not Recovered/Not Resolved]
  - Weight increased [Recovering/Resolving]
  - Back pain [Recovering/Resolving]
  - Nausea [Recovering/Resolving]
  - Depression [Recovering/Resolving]
  - Endometriosis [Recovered/Resolved]
  - Insomnia [Recovering/Resolving]
  - Malaise [Recovered/Resolved]
  - Pruritus [Recovering/Resolving]
  - Diffuse alopecia [Recovering/Resolving]
  - Irritability [Recovering/Resolving]
  - Headache [Recovering/Resolving]
  - Amnesia [Not Recovered/Not Resolved]
  - Asthenia [Recovering/Resolving]

NARRATIVE: CASE EVENT DATE: 201007
